FAERS Safety Report 7757729-7 (Version None)
Quarter: 2011Q3

REPORT INFORMATION
  Report Type: 
  Country: None (occurrence: None)
  Receive Date: 20110916
  Receipt Date: 20100806
  Transmission Date: 20111222
  Serious: No
  Sender: FDA-Public Use
  Company Number: US-ALLERGAN-1010259US

PATIENT
  Age: 71 Year
  Sex: Female

DRUGS (2)
  1. PRED FORTE [Concomitant]
     Dosage: 2 GTT, QD
  2. ACUVAIL [Suspect]
     Indication: CATARACT OPERATION
     Dosage: 1 GTT, BID
     Route: 047
     Dates: start: 20100701, end: 20100701

REACTIONS (3)
  - INTRAOCULAR PRESSURE INCREASED [None]
  - EYE PAIN [None]
  - VISION BLURRED [None]
